FAERS Safety Report 5422587-2 (Version None)
Quarter: 2007Q3

REPORT INFORMATION
  Report Type: 
  Country: None (occurrence: None)
  Receive Date: 20070822
  Receipt Date: 20070627
  Transmission Date: 20080115
  Serious: Yes (Hospitalization, Other)
  Sender: FDA-Public Use
  Company Number: US-PURDUE-USA_2007_0028167

PATIENT
  Sex: Female
  Weight: 64 kg

DRUGS (7)
  1. OXYCONTIN [Suspect]
     Indication: BACK PAIN
     Dosage: 10 MG, TID
     Dates: start: 19991122, end: 20011022
  2. WELLBUTRIN [Concomitant]
  3. CELEXA [Concomitant]
  4. DESYREL [Concomitant]
  5. OXYIR [Concomitant]
  6. ATIVAN [Concomitant]
  7. NEURONTIN [Concomitant]

REACTIONS (4)
  - AMNESIA [None]
  - DRUG DEPENDENCE [None]
  - SUICIDAL IDEATION [None]
  - SUICIDE ATTEMPT [None]
